FAERS Safety Report 8625109-8 (Version None)
Quarter: 2012Q3

REPORT INFORMATION
  Report Type: 
  Country: None (occurrence: None)
  Receive Date: 20120827
  Receipt Date: 20120815
  Transmission Date: 20120928
  Serious: Yes (Hospitalization)
  Sender: FDA-Public Use
  Company Number: US-GLAXOSMITHKLINE-A0990826A

PATIENT
  Age: 68 Year
  Sex: Female

DRUGS (26)
  1. CARTIA XT [Concomitant]
  2. PREMARIN [Concomitant]
  3. TYLENOL [Concomitant]
  4. PROMETHAZINE [Concomitant]
  5. TRAMADOL HCL [Concomitant]
  6. ASPIRIN [Concomitant]
  7. CALCIUM CARBONATE [Concomitant]
  8. FISH OIL [Concomitant]
  9. FUROSEMIDE [Concomitant]
  10. COMBIVENT [Suspect]
     Indication: EMPHYSEMA
     Dosage: 2PUFF FOUR TIMES PER DAY
     Route: 055
     Dates: start: 20000101
  11. PROTONIX [Concomitant]
  12. NORCO [Concomitant]
  13. SPIRONOLACTONE [Concomitant]
  14. FLUTICASONE PROPIONATE [Suspect]
     Indication: PRODUCT USED FOR UNKNOWN INDICATION
     Dosage: 1PUFF TWICE PER DAY
     Route: 055
  15. DIOVAN [Concomitant]
  16. MULTI-VITAMIN [Concomitant]
  17. VITAMIN B-12 [Concomitant]
  18. POTASSIUM [Suspect]
     Indication: SUPPLEMENTATION THERAPY
     Dates: end: 20110101
  19. CALCIUM [Concomitant]
  20. COUMADIN [Concomitant]
  21. BETAMETHASONE + CLOTRIMAZOLE [Concomitant]
  22. METOPROLOL [Concomitant]
  23. PROVERA [Concomitant]
  24. SPIRIVA [Suspect]
     Indication: CHRONIC OBSTRUCTIVE PULMONARY DISEASE
     Dosage: 18MCG SEE DOSAGE TEXT
     Route: 055
     Dates: start: 20090101
  25. OXYGEN [Concomitant]
  26. PRAVASTATIN [Concomitant]

REACTIONS (11)
  - SINUS OPERATION [None]
  - GLOSSODYNIA [None]
  - MUSCLE SPASMS [None]
  - BLOOD POTASSIUM INCREASED [None]
  - DIPLEGIA [None]
  - OXYGEN SATURATION DECREASED [None]
  - LOSS OF CONSCIOUSNESS [None]
  - CHRONIC OBSTRUCTIVE PULMONARY DISEASE [None]
  - ORAL CANDIDIASIS [None]
  - DRUG INEFFECTIVE [None]
  - DYSPNOEA [None]
